FAERS Safety Report 9084572 (Version 3)
Quarter: 2013Q1

REPORT INFORMATION
  Report Type: Spontaneous
  Country: CA (occurrence: CA)
  Receive Date: 20130131
  Receipt Date: 20130221
  Transmission Date: 20140127
  Serious: Yes (Other)
  Sender: FDA-Public Use
  Company Number: CA-JNJFOC-20130115753

PATIENT
  Sex: Male
  Weight: 65.77 kg

DRUGS (1)
  1. REMICADE [Suspect]
     Indication: COLITIS ULCERATIVE
     Dosage: 8 INFUSIONS GIVEN
     Route: 042
     Dates: start: 2011, end: 201211

REACTIONS (1)
  - Chronic myeloid leukaemia [Unknown]
